FAERS Safety Report 9991457 (Version 1)
Quarter: 2014Q1

REPORT INFORMATION
  Report Type: Report from Study
  Country: FR (occurrence: FR)
  Receive Date: 20140310
  Receipt Date: 20140310
  Transmission Date: 20141002
  Serious: Yes (Death, Other)
  Sender: FDA-Public Use
  Company Number: FR-MILLENNIUM PHARMACEUTICALS, INC.-2014JNJ000741

PATIENT
  Sex: 0

DRUGS (2)
  1. VELCADE [Suspect]
     Indication: PLASMA CELL MYELOMA
     Dosage: UNK
     Route: 058
     Dates: start: 20130322, end: 20130613
  2. DEXAMETHASONE [Suspect]
     Indication: PLASMA CELL MYELOMA
     Dosage: 20 UNK, UNK
     Route: 048
     Dates: start: 20130322, end: 20130614

REACTIONS (4)
  - Cerebral haematoma [Fatal]
  - Subarachnoid haemorrhage [Fatal]
  - Pancytopenia [Fatal]
  - Intraventricular haemorrhage [Fatal]
